FAERS Safety Report 5842373-9 (Version None)
Quarter: 2008Q3

REPORT INFORMATION
  Report Type: 
  Country: None (occurrence: None)
  Receive Date: 20080812
  Receipt Date: 20080808
  Transmission Date: 20090109
  Serious: Yes (Other)
  Sender: FDA-Public Use
  Company Number: AT-BOEHRINGER INGELHEIM GMBH, GERMANY-2008-BE-00060BE

PATIENT
  Sex: Male

DRUGS (3)
  1. MICARDIS [Suspect]
     Dosage: 80 MG + 40 MG DAILY (=120MG)
  2. SIMVASTATIN [Concomitant]
  3. MARCUMAR [Concomitant]

REACTIONS (2)
  - AGRANULOCYTOSIS [None]
  - LEUKOPENIA [None]
